FAERS Safety Report 6864874-7 (Version None)
Quarter: 2010Q3

REPORT INFORMATION
  Report Type: 
  Country: None (occurrence: None)
  Receive Date: 20100721
  Receipt Date: 20080407
  Transmission Date: 20110219
  Serious: No
  Sender: FDA-Public Use
  Company Number: US-PFIZER INC-2008031824

PATIENT
  Sex: Male
  Weight: 77.272 kg

DRUGS (2)
  1. CHANTIX [Suspect]
     Indication: SMOKING CESSATION THERAPY
     Route: 048
     Dates: start: 20080301, end: 20080405
  2. ALCOHOL [Suspect]
     Dates: start: 20080405

REACTIONS (4)
  - DIARRHOEA [None]
  - MALAISE [None]
  - MIGRAINE [None]
  - VOMITING [None]
